FAERS Safety Report 13397414 (Version 1)
Quarter: 2017Q2

REPORT INFORMATION
  Report Type: Spontaneous
  Country: US (occurrence: US)
  Receive Date: 20170403
  Receipt Date: 20170403
  Transmission Date: 20170830
  Serious: Yes (Other)
  Sender: FDA-Public Use
  Company Number: US-CELGENEUS-USA-2017037163

PATIENT

DRUGS (15)
  1. REVLIMID [Suspect]
     Active Substance: LENALIDOMIDE
     Dosage: 25 MG EVERY MORNING, 50 MG EVERY EVENING
     Route: 048
  2. MELPHALAN. [Suspect]
     Active Substance: MELPHALAN
     Indication: PLASMA CELL MYELOMA
     Dosage: 200 MILLIGRAM/SQ. METER
     Route: 041
  3. ASPIRIN. [Concomitant]
     Active Substance: ASPIRIN
     Indication: PRODUCT USED FOR UNKNOWN INDICATION
     Dosage: 81 MILLIGRAM
     Route: 065
  4. DEXAMETHASONE. [Concomitant]
     Active Substance: DEXAMETHASONE
     Indication: PRODUCT USED FOR UNKNOWN INDICATION
     Route: 065
  5. HEPARIN [Concomitant]
     Active Substance: HEPARIN SODIUM
     Indication: ANTICOAGULANT THERAPY
     Dosage: 40 MILLIGRAM
     Route: 058
  6. REVLIMID [Suspect]
     Active Substance: LENALIDOMIDE
     Indication: PLASMA CELL MYELOMA
     Dosage: 50 MILLIGRAM
     Route: 048
  7. REVLIMID [Suspect]
     Active Substance: LENALIDOMIDE
     Dosage: 25 MILLIGRAM
     Route: 048
  8. REVLIMID [Suspect]
     Active Substance: LENALIDOMIDE
     Dosage: 50 MG EVERY MORNING, 75 MG EVERY EVENING
     Route: 048
  9. LEVOFLOXACIN. [Concomitant]
     Active Substance: LEVOFLOXACIN
     Indication: INFECTION PROPHYLAXIS
     Route: 065
  10. BORTEZOMIB [Concomitant]
     Active Substance: BORTEZOMIB
     Indication: PRODUCT USED FOR UNKNOWN INDICATION
     Route: 065
  11. REVLIMID [Suspect]
     Active Substance: LENALIDOMIDE
     Dosage: 100 MG EVERY MORNING, 150 MG EVERY EVENING
     Route: 048
  12. ACYCLOVIR. [Concomitant]
     Active Substance: ACYCLOVIR
     Indication: INFECTION PROPHYLAXIS
     Route: 065
  13. REVLIMID [Suspect]
     Active Substance: LENALIDOMIDE
     Dosage: 75 MG EVERY MORNING, 100 MG EVERY EVENING
     Route: 048
  14. REVLIMID [Suspect]
     Active Substance: LENALIDOMIDE
     Dosage: 150 MG EVERY MORNING, 200 MG EVERY EVENING
     Route: 048
  15. FLUCONAZOLE. [Concomitant]
     Active Substance: FLUCONAZOLE
     Indication: INFECTION PROPHYLAXIS
     Route: 065

REACTIONS (63)
  - Acute kidney injury [Unknown]
  - Sepsis [Unknown]
  - Abdominal pain [Unknown]
  - Rash maculo-papular [Unknown]
  - Cough [Unknown]
  - Anuria [Unknown]
  - Cholecystitis [Unknown]
  - Febrile neutropenia [Unknown]
  - Syncope [Unknown]
  - Dehydration [Unknown]
  - Dysgeusia [Unknown]
  - Neuropathy peripheral [Unknown]
  - Acute respiratory failure [Unknown]
  - Hypoxia [Unknown]
  - Arthralgia [Unknown]
  - Hypomagnesaemia [Unknown]
  - Nasal congestion [Unknown]
  - Stomatitis [Unknown]
  - Sinus tachycardia [Unknown]
  - Decreased appetite [Unknown]
  - Parainfluenzae virus infection [Recovered/Resolved]
  - Dyspepsia [Unknown]
  - Dyspnoea [Unknown]
  - Weight decreased [Unknown]
  - Myalgia [Unknown]
  - Dry skin [Unknown]
  - Back pain [Unknown]
  - Diarrhoea [Unknown]
  - Nausea [Unknown]
  - Hypocalcaemia [Unknown]
  - Colitis [Unknown]
  - Upper respiratory tract infection [Unknown]
  - Odynophagia [Unknown]
  - Hypoglycaemia [Unknown]
  - Vomiting [Unknown]
  - Constipation [Unknown]
  - Dry mouth [Unknown]
  - Pruritus [Unknown]
  - Thrombocytopenia [Unknown]
  - Muscular weakness [Unknown]
  - Cellulitis [Unknown]
  - Influenza [Unknown]
  - Hyperhidrosis [Unknown]
  - Oedema peripheral [Unknown]
  - Insomnia [Unknown]
  - Vision blurred [Unknown]
  - Neutropenia [Unknown]
  - Hyperglycaemia [Unknown]
  - Hypotension [Unknown]
  - Gastroenteritis [Unknown]
  - Legionella infection [Unknown]
  - Atrial fibrillation [Unknown]
  - Fatigue [Unknown]
  - Blood bilirubin increased [Unknown]
  - Dizziness [Unknown]
  - Tachycardia [Recovered/Resolved]
  - Hypercalcaemia [Unknown]
  - Myocardial infarction [Recovered/Resolved]
  - Hypokalaemia [Unknown]
  - Pneumonia [Unknown]
  - Pyrexia [Unknown]
  - Chills [Unknown]
  - Anaemia [Unknown]
